FAERS Safety Report 23158984 (Version 3)
Quarter: 2023Q4

REPORT INFORMATION
  Report Type: Spontaneous
  Country: US (occurrence: US)
  Receive Date: 20231108
  Receipt Date: 20231208
  Transmission Date: 20240110
  Serious: No
  Sender: FDA-Public Use
  Company Number: US-002147023-NVSC2023US238280

PATIENT
  Sex: Female

DRUGS (1)
  1. PROMACTA [Suspect]
     Active Substance: ELTROMBOPAG OLAMINE
     Indication: Immune thrombocytopenia
     Dosage: 50 UNK, QD
     Route: 048
     Dates: start: 202310

REACTIONS (4)
  - Burning sensation [Unknown]
  - Arthralgia [Unknown]
  - Headache [Unknown]
  - Restless legs syndrome [Unknown]
